FAERS Safety Report 6368028-2 (Version None)
Quarter: 2009Q3

REPORT INFORMATION
  Report Type: 
  Country: None (occurrence: None)
  Receive Date: 20090922
  Receipt Date: 20090908
  Transmission Date: 20100115
  Serious: Yes (Other)
  Sender: FDA-Public Use
  Company Number: US-ROCHE-590333

PATIENT
  Sex: Female

DRUGS (3)
  1. PEG-INTERFERON A-2A (RO 25-8310) [Suspect]
     Indication: HEPATITIS C
     Dosage: FORM: PRE-FILLED SYRINGE; COMPLETED 48 WEEK OF TREATMENT
     Route: 065
     Dates: start: 20080815, end: 20090703
  2. RIBAVIRIN [Suspect]
     Indication: HEPATITIS C
     Dosage: DIVIDED DOSES
     Route: 065
     Dates: start: 20080815
  3. RIBAVIRIN [Suspect]
     Dosage: COMPLETED 48 WEEK OF TREATMENT
     Route: 065
     Dates: start: 20090306, end: 20090703

REACTIONS (5)
  - ANXIETY [None]
  - DEPRESSION [None]
  - PARANOIA [None]
  - RASH PRURITIC [None]
  - THIRST [None]
